FAERS Safety Report 5846620-9 (Version None)
Quarter: 2008Q3

REPORT INFORMATION
  Report Type: 
  Country: None (occurrence: None)
  Receive Date: 20080815
  Receipt Date: 20080807
  Transmission Date: 20090109
  Serious: Yes (Other)
  Sender: FDA-Public Use
  Company Number: A0728297A

PATIENT
  Age: 47 Year
  Sex: Female
  Weight: 68.2 kg

DRUGS (3)
  1. VERAMYST [Suspect]
     Dosage: 2SPR PER DAY
     Route: 045
  2. ASTELIN [Concomitant]
     Route: 045
  3. UNKNOWN [Concomitant]

REACTIONS (2)
  - DRY SKIN [None]
  - SKIN ATROPHY [None]
